FAERS Safety Report 21383920 (Version 1)
Quarter: 2022Q3

REPORT INFORMATION
  Report Type: Spontaneous
  Country: US (occurrence: US)
  Receive Date: 20220928
  Receipt Date: 20220928
  Transmission Date: 20221026
  Serious: No
  Sender: FDA-Public Use
  Company Number: US-ALK-ABELLO A/S-2022AA002703

PATIENT

DRUGS (3)
  1. HISTAMINE PHOSPHATE [Suspect]
     Active Substance: HISTAMINE PHOSPHATE
     Indication: Diagnostic procedure
     Dosage: UNK
     Dates: start: 20220818
  2. HISTAMINE PHOSPHATE [Suspect]
     Active Substance: HISTAMINE PHOSPHATE
     Dosage: UNK
  3. ZYRTEC [Concomitant]
     Active Substance: CETIRIZINE HYDROCHLORIDE

REACTIONS (1)
  - False negative investigation result [Unknown]

NARRATIVE: CASE EVENT DATE: 20220818
